FAERS Safety Report 17082878 (Version 1)
Quarter: 2019Q4

REPORT INFORMATION
  Report Type: Spontaneous
  Country: DE (occurrence: DE)
  Receive Date: 20191127
  Receipt Date: 20191127
  Transmission Date: 20200122
  Serious: Yes (Life-Threatening, Hospitalization)
  Sender: FDA-Public Use
  Company Number: DE-MYLANLABS-2019M1116480

PATIENT
  Age: 77 Year
  Sex: Male
  Weight: 67 kg

DRUGS (17)
  1. CLOPIDOGREL [Suspect]
     Active Substance: CLOPIDOGREL BISULFATE
     Indication: PRODUCT USED FOR UNKNOWN INDICATION
     Dosage: 75 MILLIGRAM, QD, , 0-0-1-0
     Route: 048
  2. PREGABALIN. [Concomitant]
     Active Substance: PREGABALIN
     Dosage: 75 MILLIGRAM, BID, 1-0-1-0,
     Route: 048
  3. INSULIN [Concomitant]
     Active Substance: INSULIN NOS
     Dosage: SCHEMA
     Route: 058
  4. AMLODIPINE [Concomitant]
     Active Substance: AMLODIPINE BESYLATE
     Dosage: 5 MILLIGRAM, BID, 1-0-1-0,
     Route: 048
  5. EFFENTORA [Concomitant]
     Active Substance: FENTANYL CITRATE
     Dosage: 100 MICROGRAM, QD(0-0-1-0)
     Route: 048
  6. TARGIN [Concomitant]
     Active Substance: NALOXONE HYDROCHLORIDE\OXYCODONE HYDROCHLORIDE
     Dosage: BID, 10|5 MG, 1-0-1-0,
     Route: 048
  7. SPIRONOLACTONE. [Concomitant]
     Active Substance: SPIRONOLACTONE
     Dosage: 50 MILLIGRAM, QD, 1-0-0-0
     Route: 048
  8. FERRO-SANOL DUODENAL [Concomitant]
     Active Substance: FERROUS GLYCINE SULFATE
     Dosage: 100 MILLIGRAM, QD
     Route: 048
  9. IRBESARTAN. [Concomitant]
     Active Substance: IRBESARTAN
     Dosage: 300 MILLIGRAM, QD, 1-0-0-0
     Route: 048
  10. PANTOZOL [Concomitant]
     Active Substance: PANTOPRAZOLE SODIUM
     Dosage: 40 MILLIGRAM, BID, 1-0-1-0
     Route: 048
  11. HYDROCHLOROTHIAZID [Concomitant]
     Active Substance: HYDROCHLOROTHIAZIDE
     Dosage: 25 MILLIGRAM, QD, 1-0-0-0,
     Route: 048
  12. ALLOPURINOL. [Concomitant]
     Active Substance: ALLOPURINOL
     Dosage: 100 MILLIGRAM, QD(1-0-0-0)
     Route: 048
  13. NOVALGIN (METAMIZOLE SODIUM) [Concomitant]
     Active Substance: METAMIZOLE SODIUM
     Dosage: 1 GRAM, TID,1-1-1-0,
     Route: 048
  14. JODID [Concomitant]
     Active Substance: IODINE
     Dosage: 200 MICROGRAM, QD,1-0-0-0,
     Route: 048
  15. METOPROLOL. [Concomitant]
     Active Substance: METOPROLOL
     Dosage: 95 MILLIGRAM, QD, 0--0-1-0
     Route: 048
  16. KREON [Concomitant]
     Active Substance: PANCRELIPASE
     Dosage: TID, 50000 IE, 1-1-1-0,
     Route: 048
  17. SIMVASTATIN. [Concomitant]
     Active Substance: SIMVASTATIN
     Dosage: 40 MILLIGRAM, QD(0-0-1-0)
     Route: 048

REACTIONS (5)
  - Diarrhoea haemorrhagic [Unknown]
  - Asthenia [Unknown]
  - Fatigue [Unknown]
  - Abdominal pain [Unknown]
  - Preternatural anus [Unknown]
